FAERS Safety Report 9455773 (Version 2)
Quarter: 2013Q3

REPORT INFORMATION
  Report Type: Spontaneous
  Country: CN (occurrence: CN)
  Receive Date: 20130813
  Receipt Date: 20130919
  Transmission Date: 20140515
  Serious: Yes (Other)
  Sender: FDA-Public Use
  Company Number: CN-BAYER-2013-094338

PATIENT
  Sex: Male

DRUGS (3)
  1. KOGENATE FS [Suspect]
     Dosage: 250 IU, UNK
     Dates: start: 2009
  2. KOGENATE FS [Suspect]
     Dosage: 500 IU ONCE EVERY 5 DAYS
     Dates: start: 20130802
  3. KOGENATE FS [Suspect]
     Dosage: 250 IU, UNK
     Dates: start: 20130805

REACTIONS (3)
  - Haemarthrosis [Recovered/Resolved]
  - Pain [Recovered/Resolved]
  - Drug ineffective [None]
